FAERS Safety Report 7195730-5 (Version None)
Quarter: 2010Q4

REPORT INFORMATION
  Report Type: 
  Country: None (occurrence: None)
  Receive Date: 20101223
  Receipt Date: 20101007
  Transmission Date: 20110411
  Serious: No
  Sender: FDA-Public Use
  Company Number: US-AMGEN-KDL443776

PATIENT

DRUGS (7)
  1. ENBREL [Suspect]
     Indication: PRODUCT USED FOR UNKNOWN INDICATION
     Dosage: 50 MG, 2 TIMES/WK
     Route: 058
  2. ALBUTEROL SULFATE [Concomitant]
     Dosage: 90 A?G, UNK
  3. ALBUTEROL INHALER [Concomitant]
     Dosage: .083 %, UNK
     Route: 055
  4. FISH OIL [Concomitant]
     Dosage: UNK UNK, UNK
     Route: 048
  5. LEVETIRACETAM [Concomitant]
     Dosage: 250 MG, UNK
     Route: 048
  6. MULTI-VITAMINS [Concomitant]
  7. FLUTICASONE PROPIONATE [Concomitant]
     Dosage: 110 A?G, UNK

REACTIONS (2)
  - INFLUENZA LIKE ILLNESS [None]
  - MALAISE [None]
